FAERS Safety Report 5917173-1 (Version None)
Quarter: 2008Q4

REPORT INFORMATION
  Report Type: 
  Country: None (occurrence: None)
  Receive Date: 20081014
  Receipt Date: 20081003
  Transmission Date: 20090506
  Serious: Yes (Other)
  Sender: FDA-Public Use
  Company Number: SE-JNJFOC-20081001494

PATIENT
  Age: 57 Year
  Sex: Male

DRUGS (5)
  1. REMICADE [Suspect]
     Indication: REITER'S SYNDROME
     Route: 042
  2. REMICADE [Suspect]
     Indication: RHEUMATOID ARTHRITIS
     Route: 042
  3. METHOTREXATE [Suspect]
     Indication: DRUG USE FOR UNKNOWN INDICATION
     Route: 048
  4. FOLACIN [Concomitant]
  5. DIKLOFENAK [Concomitant]

REACTIONS (6)
  - ARTHRODESIS [None]
  - DIZZINESS [None]
  - INFUSION RELATED REACTION [None]
  - MALIGNANT RESPIRATORY TRACT NEOPLASM [None]
  - METASTASES TO BONE [None]
  - NAUSEA [None]
